FAERS Safety Report 9529421 (Version 2)
Quarter: 2013Q3

REPORT INFORMATION
  Report Type: Spontaneous
  Country: NO (occurrence: NO)
  Receive Date: 20130917
  Receipt Date: 20130926
  Transmission Date: 20140515
  Serious: Yes (Other)
  Sender: FDA-Public Use
  Company Number: NO-PFIZER INC-2013265162

PATIENT
  Age: 23 Year
  Sex: Male

DRUGS (2)
  1. SOMAC [Suspect]
     Indication: GASTRIC ULCER
     Dosage: 40 MG, 1X/DAY
     Route: 048
     Dates: start: 201308, end: 20130906
  2. SOMAC [Suspect]
     Indication: GASTRITIS

REACTIONS (2)
  - Pharyngeal oedema [Unknown]
  - Tonsillar hypertrophy [Unknown]
